FAERS Safety Report 15057713 (Version 1)
Quarter: 2018Q2

REPORT INFORMATION
  Report Type: Spontaneous
  Country: DK (occurrence: DK)
  Receive Date: 20180625
  Receipt Date: 20180625
  Transmission Date: 20180711
  Serious: Yes (Hospitalization)
  Sender: FDA-Public Use
  Company Number: DK-BAUSCH-BL-2018-017149

PATIENT
  Age: 54 Year
  Sex: Male
  Weight: 66 kg

DRUGS (1)
  1. METFORMIN [Suspect]
     Active Substance: METFORMIN HYDROCHLORIDE
     Indication: SUICIDE ATTEMPT
     Route: 048

REACTIONS (8)
  - Respiratory failure [Recovering/Resolving]
  - Metabolic acidosis [Recovering/Resolving]
  - Toxicity to various agents [Recovering/Resolving]
  - Acute kidney injury [Recovering/Resolving]
  - Circulatory collapse [Recovering/Resolving]
  - Lactic acidosis [Recovering/Resolving]
  - Overdose [Recovering/Resolving]
  - Suicide attempt [Recovered/Resolved]
